FAERS Safety Report 24809082 (Version 2)
Quarter: 2025Q4

REPORT INFORMATION
  Report Type: Spontaneous
  Country: EU (occurrence: EU)
  Receive Date: 20250106
  Receipt Date: 20251203
  Transmission Date: 20260118
  Serious: No
  Sender: ASTELLAS
  Company Number: EU-ASTELLAS-2024-AER-025285

PATIENT
  Age: 55 Year
  Sex: Female

DRUGS (1)
  1. VEOZAH [Suspect]
     Active Substance: FEZOLINETANT
     Indication: Menopausal symptoms
     Dosage: 1 PER DAY AT 1 PM
     Route: 065
     Dates: start: 20241202

REACTIONS (2)
  - Transaminases increased [Unknown]
  - Drug ineffective [Unknown]

NARRATIVE: CASE EVENT DATE: 20241202
